FAERS Safety Report 6287708-0 (Version None)
Quarter: 2009Q3

REPORT INFORMATION
  Report Type: 
  Country: None (occurrence: None)
  Receive Date: 20090727
  Receipt Date: 20090727
  Transmission Date: 20100115
  Serious: Yes (Other)
  Sender: FDA-Public Use
  Company Number: None

PATIENT
  Age: 11 Year
  Sex: Male
  Weight: 34.0198 kg

DRUGS (1)
  1. SINGULAIR [Suspect]
     Indication: MULTIPLE ALLERGIES
     Dosage: 1 TAB QHS, HS, PO
     Route: 048
     Dates: start: 20090618, end: 20090720

REACTIONS (2)
  - EXCESSIVE EYE BLINKING [None]
  - MUSCLE TWITCHING [None]
